FAERS Safety Report 7353813-0 (Version None)
Quarter: 2011Q1

REPORT INFORMATION
  Report Type: 
  Country: None (occurrence: None)
  Receive Date: 20110310
  Receipt Date: 20110310
  Transmission Date: 20110831
  Serious: No
  Sender: FDA-Public Use
  Company Number: None

PATIENT
  Age: 63 Year
  Sex: Female
  Weight: 61.2356 kg

DRUGS (1)
  1. PREVACID [Suspect]
     Indication: GASTROINTESTINAL DISORDER
     Dosage: 15MG NIGHTLY PO
     Route: 048
     Dates: start: 20101001, end: 20110201

REACTIONS (2)
  - COLITIS COLLAGENOUS [None]
  - IMPAIRED WORK ABILITY [None]
